FAERS Safety Report 9812085 (Version 1)
Quarter: 2014Q1

REPORT INFORMATION
  Report Type: Spontaneous
  Country: US (occurrence: US)
  Receive Date: 20140111
  Receipt Date: 20140111
  Transmission Date: 20141002
  Serious: Yes (Death)
  Sender: FDA-Public Use
  Company Number: US-ASTRAZENECA-2014SE02063

PATIENT
  Age: 64 Year
  Sex: Female

DRUGS (4)
  1. ATENOLOL [Suspect]
     Route: 048
  2. QUETIAPINE [Suspect]
     Route: 048
  3. ARIPIPRAZOLE [Suspect]
     Route: 048
  4. VENLAFAXINE [Suspect]
     Route: 048

REACTIONS (2)
  - Toxicity to various agents [Fatal]
  - Completed suicide [Fatal]
